FAERS Safety Report 9726481 (Version 1)
Quarter: 2013Q4

REPORT INFORMATION
  Report Type: Spontaneous
  Country: US (occurrence: None)
  Receive Date: 20131202
  Receipt Date: 20131202
  Transmission Date: 20140711
  Serious: Yes (Hospitalization)
  Sender: FDA-Public Use
  Company Number: None

PATIENT
  Age: 59 Year
  Sex: Male
  Weight: 51.17 kg

DRUGS (9)
  1. CETUXIMAB [Suspect]
     Indication: METASTATIC SQUAMOUS CELL CARCINOMA
     Route: 042
     Dates: start: 20130930, end: 20131118
  2. CETUXIMAB [Suspect]
     Indication: SQUAMOUS CELL CARCINOMA OF HEAD AND NECK
     Route: 042
     Dates: start: 20130930, end: 20131118
  3. PAZOPANIB [Suspect]
     Indication: SQUAMOUS CELL CARCINOMA OF HEAD AND NECK
     Route: 048
     Dates: start: 20130930, end: 20131125
  4. LOSARTAN POTASSIUM [Concomitant]
  5. MORPHINE SULFATE ER [Concomitant]
  6. OXYCODONE HCI [Concomitant]
  7. OXYCODONE HCI [Concomitant]
  8. SMZ-TMP DS 800 [Concomitant]
  9. SODIUM CHLORIDE [Concomitant]

REACTIONS (3)
  - Malaise [None]
  - White blood cell count increased [None]
  - Lung infection [None]
